FAERS Safety Report 6339351-2 (Version None)
Quarter: 2009Q3

REPORT INFORMATION
  Report Type: 
  Country: None (occurrence: None)
  Receive Date: 20090903
  Receipt Date: 20090828
  Transmission Date: 20100115
  Serious: Yes (Death)
  Sender: FDA-Public Use
  Company Number: US-GILEAD-2009-0023886

PATIENT
  Sex: Female
  Weight: 54.934 kg

DRUGS (12)
  1. LETAIRIS [Suspect]
     Indication: PULMONARY ARTERIAL HYPERTENSION
     Route: 048
     Dates: start: 20090626
  2. CLONAZEPAM [Concomitant]
  3. OXYGEN [Concomitant]
  4. FOSAMAX [Concomitant]
  5. MIRAPEX [Concomitant]
     Indication: RESTLESS LEGS SYNDROME
  6. PREDNISONE [Concomitant]
     Indication: SARCOIDOSIS
  7. SYMBICORT [Concomitant]
     Indication: CHRONIC OBSTRUCTIVE PULMONARY DISEASE
  8. CALCIUM [Concomitant]
  9. LEXAPRO [Concomitant]
  10. SPIRIVA [Concomitant]
     Indication: CHRONIC OBSTRUCTIVE PULMONARY DISEASE
  11. SIMVASTATIN [Concomitant]
  12. ATROVENT [Concomitant]

REACTIONS (2)
  - CARDIAC ARREST [None]
  - HAEMOPTYSIS [None]
